FAERS Safety Report 10968183 (Version 1)
Quarter: 2015Q1

REPORT INFORMATION
  Report Type: Spontaneous
  Country: US (occurrence: US)
  Receive Date: 20150330
  Receipt Date: 20150330
  Transmission Date: 20150721
  Serious: No
  Sender: FDA-Public Use
  Company Number: US-GLAXOSMITHKLINE-US2015041110

PATIENT
  Age: 62 Year
  Sex: Female

DRUGS (10)
  1. FLUNISOLIDE. [Suspect]
     Active Substance: FLUNISOLIDE
     Indication: RHINITIS
     Dosage: UNK
     Route: 045
     Dates: start: 201411, end: 201412
  2. VENTOLIN HFA [Concomitant]
     Active Substance: ALBUTEROL SULFATE
  3. ATROVENT HFA [Concomitant]
     Active Substance: IPRATROPIUM BROMIDE
  4. CALCIUM + VIT D [Concomitant]
  5. FLOVENT [Suspect]
     Active Substance: FLUTICASONE PROPIONATE
     Indication: ASTHMA
     Dosage: 2 PUFF(S), BID
     Route: 055
     Dates: start: 20140703, end: 20150104
  6. ADVAIR HFA [Suspect]
     Active Substance: FLUTICASONE PROPIONATE\SALMETEROL XINAFOATE
     Indication: ASTHMA
     Dosage: 2 PUFF(S), BID
     Route: 055
     Dates: start: 20150105
  7. FLONASE [Suspect]
     Active Substance: FLUTICASONE PROPIONATE
     Indication: RHINITIS
     Dosage: UNK
     Route: 045
     Dates: start: 20140520, end: 201411
  8. PROAIR HFA [Concomitant]
     Active Substance: ALBUTEROL SULFATE
  9. ATORVASTATIN [Concomitant]
     Active Substance: ATORVASTATIN
  10. VITAMIN D [Concomitant]
     Active Substance: CHOLECALCIFEROL

REACTIONS (8)
  - Dysphonia [Not Recovered/Not Resolved]
  - Muscle spasms [Not Recovered/Not Resolved]
  - Parosmia [Recovered/Resolved]
  - Productive cough [Not Recovered/Not Resolved]
  - Nasopharyngitis [Recovered/Resolved]
  - Rhinorrhoea [Not Recovered/Not Resolved]
  - Dyspnoea [Recovering/Resolving]
  - Epistaxis [Recovered/Resolved]

NARRATIVE: CASE EVENT DATE: 201412
